FAERS Safety Report 10025963 (Version 3)
Quarter: 2014Q2

REPORT INFORMATION
  Report Type: Report from Study
  Country: JP (occurrence: JP)
  Receive Date: 20140320
  Receipt Date: 20140415
  Transmission Date: 20141212
  Serious: Yes (Death, Hospitalization)
  Sender: FDA-Public Use
  Company Number: JP-ASTRAZENECA-2014SE03568

PATIENT
  Age: 90 Year
  Sex: Female
  Weight: 36 kg

DRUGS (11)
  1. NEXIUM [Suspect]
     Indication: PROPHYLAXIS AGAINST GASTROINTESTINAL ULCER
     Route: 048
     Dates: start: 20121221, end: 20130409
  2. NITRODERM TTS [Concomitant]
     Indication: HYPERTENSION
     Dosage: 25 MG/DAY NUMBER OF SEPARATE DOSAGES UNKNOWN
     Route: 065
     Dates: end: 20130221
  3. METHYCOBAL [Concomitant]
     Indication: NEUROPATHY PERIPHERAL
     Dosage: 1500 UG/DAY NUMBER OF SEPARATE DOSAGES UNKNOWN
     Route: 048
     Dates: end: 20130409
  4. PERSANTIN [Concomitant]
     Indication: MYOCARDIAL ISCHAEMIA
     Dosage: 75 MG/DAY NUMBER OF SEPARATE DOSAGES UNKNOWN
     Route: 048
     Dates: end: 20130401
  5. LENDORMIN [Concomitant]
     Indication: POOR QUALITY SLEEP
     Dosage: 0.25 MG/DAY NUMBER OF SEPARATE DOSAGES UNKNOWN
     Route: 048
     Dates: end: 20130408
  6. FERROMIA [Concomitant]
     Indication: IRON DEFICIENCY ANAEMIA
     Dosage: 50 MG/DAY NUMBER OF SEPARATE DOSAGES UNKNOWN
     Route: 048
     Dates: end: 20130409
  7. GENTACIN [Concomitant]
     Indication: ECZEMA
     Dosage: AS REQUIRED
     Route: 062
     Dates: end: 20130409
  8. MS ONSHIPPU [Concomitant]
     Indication: BACK PAIN
     Dosage: AS REQUIRED
     Route: 062
     Dates: end: 20130410
  9. MYSLEE [Concomitant]
     Indication: POOR QUALITY SLEEP
     Route: 048
     Dates: start: 20130304, end: 20130408
  10. LOXONIN [Concomitant]
     Indication: OSTEOARTHRITIS
     Dosage: AS REQUIRED
     Route: 048
  11. VOLTAREN [Concomitant]
     Indication: OSTEOARTHRITIS
     Dosage: AS REQUIRED
     Route: 054

REACTIONS (1)
  - Pneumonia [Fatal]
